FAERS Safety Report 21267454 (Version 1)
Quarter: 2022Q3

REPORT INFORMATION
  Report Type: Spontaneous
  Country: IT (occurrence: IT)
  Receive Date: 20220829
  Receipt Date: 20220829
  Transmission Date: 20221027
  Serious: Yes (Death, Hospitalization, Other)
  Sender: FDA-Public Use
  Company Number: IT-BAXTER-2022BAX018003

PATIENT
  Age: 56 Year
  Sex: Male

DRUGS (6)
  1. CYCLOPHOSPHAMIDE [Suspect]
     Active Substance: CYCLOPHOSPHAMIDE
     Indication: Dermatomyositis
     Dosage: 50 MILLIGRAM, QD
     Route: 065
  2. RITUXIMAB [Suspect]
     Active Substance: RITUXIMAB
     Indication: Dermatomyositis
     Dosage: CONCENTRATE FOR SOLUTION FOR INFUSION
     Route: 065
  3. RITUXIMAB [Suspect]
     Active Substance: RITUXIMAB
     Dosage: UNK
     Route: 065
  4. ENVARSUS XR [Suspect]
     Active Substance: TACROLIMUS
     Indication: Dermatomyositis
     Dosage: HIGH DOSE, TABLET
     Route: 065
  5. METHYLPREDNISOLONE [Suspect]
     Active Substance: METHYLPREDNISOLONE
     Indication: Dermatomyositis
     Dosage: 80 MILLIGRAM, QD
     Route: 065
  6. MYCOPHENOLIC ACID [Concomitant]
     Active Substance: MYCOPHENOLIC ACID
     Indication: Product used for unknown indication
     Dosage: UNK
     Route: 065

REACTIONS (5)
  - Off label use [Fatal]
  - Disease progression [Fatal]
  - Septic shock [Fatal]
  - Respiratory failure [Fatal]
  - Off label use [Unknown]
